FAERS Safety Report 8860963 (Version 1)
Quarter: 2012Q4

REPORT INFORMATION
  Report Type: 
  Country: US (occurrence: US)
  Receive Date: 20121025
  Receipt Date: 20121025
  Transmission Date: 20130627
  Serious: No
  Sender: FDA-Public Use
  Company Number: US-AMGEN-USASP2012012607

PATIENT
  Age: 50 Year
  Sex: Female
  Weight: 102.4 kg

DRUGS (8)
  1. ENBREL [Suspect]
     Indication: PRODUCT USED FOR UNKNOWN INDICATION
     Dosage: 50 mg, qwk
     Route: 058
  2. LEUCOVORIN CA [Concomitant]
     Dosage: 10 mg, UNK
  3. METHOTREXATE [Concomitant]
     Dosage: 2.5 mg, UNK
  4. TRAMADOL HCL [Concomitant]
     Dosage: 50 mg, UNK
  5. ATENOLOL [Concomitant]
     Dosage: 25 mg, UNK
  6. FOLIC ACID [Concomitant]
     Dosage: 1 mg, UNK
  7. NAPROXEN [Concomitant]
     Dosage: 00 mg, UNK
  8. VITAMIN C                          /00008001/ [Concomitant]
     Dosage: 500 mg, UNK

REACTIONS (6)
  - Oropharyngeal pain [Recovered/Resolved]
  - Ear congestion [Recovered/Resolved]
  - Rhinorrhoea [Recovered/Resolved]
  - Upper-airway cough syndrome [Recovered/Resolved]
  - Upper respiratory tract congestion [Recovered/Resolved]
  - Bronchitis [Recovered/Resolved]
